FAERS Safety Report 20304796 (Version 9)
Quarter: 2022Q1

REPORT INFORMATION
  Report Type: Report from Study
  Country: IL (occurrence: None)
  Receive Date: 20220106
  Receipt Date: 20220311
  Transmission Date: 20220424
  Serious: Yes (Hospitalization)
  Sender: FDA-Public Use
  Company Number: IL-Eisai Medical Research-EC-2022-106214

PATIENT
  Age: 72 Year
  Sex: Male
  Weight: 67.4 kg

DRUGS (25)
  1. LENVATINIB [Suspect]
     Active Substance: LENVATINIB
     Indication: Oesophageal adenocarcinoma
     Dosage: STARTING DOSE AT 8 MILLIGRAM, FLUCTUATED DOSAGE
     Route: 048
     Dates: start: 20210804, end: 20211221
  2. LENVATINIB [Suspect]
     Active Substance: LENVATINIB
     Indication: Adenocarcinoma gastric
     Route: 048
     Dates: start: 20211223, end: 20211228
  3. PEMBROLIZUMAB [Suspect]
     Active Substance: PEMBROLIZUMAB
     Indication: Oesophageal adenocarcinoma
     Route: 041
     Dates: start: 20210804, end: 20211101
  4. PEMBROLIZUMAB [Suspect]
     Active Substance: PEMBROLIZUMAB
     Indication: Adenocarcinoma gastric
     Route: 041
     Dates: start: 20211213, end: 20211213
  5. PEMBROLIZUMAB [Suspect]
     Active Substance: PEMBROLIZUMAB
     Route: 041
     Dates: start: 20220126
  6. OXALIPLATIN [Suspect]
     Active Substance: OXALIPLATIN
     Indication: Oesophageal adenocarcinoma
     Dosage: UNK DOSE
     Route: 041
     Dates: start: 20210804, end: 20210913
  7. OXALIPLATIN [Suspect]
     Active Substance: OXALIPLATIN
     Indication: Adenocarcinoma gastric
     Dosage: UNK DOSE
     Route: 041
     Dates: start: 20211011, end: 20211011
  8. LEUCOVORIN [Suspect]
     Active Substance: LEUCOVORIN
     Indication: Oesophageal adenocarcinoma
     Dosage: UNK DOSE
     Route: 041
     Dates: start: 20210804, end: 20210929
  9. LEUCOVORIN [Suspect]
     Active Substance: LEUCOVORIN
     Indication: Adenocarcinoma gastric
     Dosage: UNK DOSE
     Route: 041
     Dates: start: 20211011, end: 20211011
  10. FLUOROURACIL [Suspect]
     Active Substance: FLUOROURACIL
     Indication: Oesophageal adenocarcinoma
     Dosage: UNK DOSE
     Route: 040
     Dates: start: 20210804, end: 20210929
  11. FLUOROURACIL [Suspect]
     Active Substance: FLUOROURACIL
     Indication: Adenocarcinoma gastric
     Dosage: UNK DOSE
     Route: 041
     Dates: start: 20210804, end: 20211001
  12. FLUOROURACIL [Suspect]
     Active Substance: FLUOROURACIL
     Dosage: UNK DOSE
     Route: 040
     Dates: start: 20211011, end: 20211013
  13. FLUOROURACIL [Suspect]
     Active Substance: FLUOROURACIL
     Dosage: UNK DOSE
     Route: 041
     Dates: start: 20211011, end: 20211013
  14. RAMIPRIL [Concomitant]
     Active Substance: RAMIPRIL
     Dates: start: 200911
  15. ATENOLOL [Concomitant]
     Active Substance: ATENOLOL
     Dates: start: 201008
  16. ATORVASTATIN CALCIUM [Concomitant]
     Active Substance: ATORVASTATIN CALCIUM
     Dates: start: 201008
  17. TRITACE COMP [Concomitant]
     Dates: start: 201008, end: 20220112
  18. METFORMIN [Concomitant]
     Active Substance: METFORMIN HYDROCHLORIDE
     Dates: start: 201803
  19. AMLODIPINE [Concomitant]
     Active Substance: AMLODIPINE BESYLATE
     Dates: start: 201809
  20. ASPIRIN [Concomitant]
     Active Substance: ASPIRIN
     Dates: start: 202007
  21. CYANOCOBALAMIN [Concomitant]
     Active Substance: CYANOCOBALAMIN
     Dates: start: 20210801
  22. CHOLECALCIFEROL [Concomitant]
     Active Substance: CHOLECALCIFEROL
     Dates: start: 20210801
  23. .ALPHA.-LIPOIC ACID [Concomitant]
     Active Substance: .ALPHA.-LIPOIC ACID
     Dates: start: 20211122
  24. HURRICAINE [Concomitant]
     Active Substance: BENZOCAINE
     Dates: start: 20211209, end: 20220101
  25. ENOXAPARIN SODIUM [Concomitant]
     Active Substance: ENOXAPARIN SODIUM
     Dates: start: 20211222, end: 20211226

REACTIONS (2)
  - Upper gastrointestinal haemorrhage [Recovered/Resolved]
  - Transient ischaemic attack [Recovered/Resolved]

NARRATIVE: CASE EVENT DATE: 20211223
